FAERS Safety Report 21719745 (Version 1)
Quarter: 2022Q4

REPORT INFORMATION
  Report Type: Report from Study
  Country: CN (occurrence: CN)
  Receive Date: 20221213
  Receipt Date: 20221213
  Transmission Date: 20230112
  Serious: Yes (Other)
  Sender: FDA-Public Use
  Company Number: CN-JNJFOC-20221216114

PATIENT

DRUGS (16)
  1. DARZALEX [Suspect]
     Active Substance: DARATUMUMAB
     Indication: Acute myeloid leukaemia
     Dosage: 400MG X 1
     Route: 065
  2. DARZALEX [Suspect]
     Active Substance: DARATUMUMAB
     Indication: Precursor T-lymphoblastic lymphoma/leukaemia
  3. DARZALEX [Suspect]
     Active Substance: DARATUMUMAB
     Indication: T-cell type acute leukaemia
  4. DARZALEX [Suspect]
     Active Substance: DARATUMUMAB
     Indication: B-cell type acute leukaemia
  5. CYTARABINE [Suspect]
     Active Substance: CYTARABINE
     Indication: Precursor T-lymphoblastic lymphoma/leukaemia
     Dosage: 100MG/D X 3-5D
     Route: 065
  6. CYTARABINE [Suspect]
     Active Substance: CYTARABINE
     Indication: Acute myeloid leukaemia
  7. CYTARABINE [Suspect]
     Active Substance: CYTARABINE
     Indication: T-cell type acute leukaemia
  8. CYTARABINE [Suspect]
     Active Substance: CYTARABINE
     Indication: B-cell type acute leukaemia
  9. ETOPOSIDE [Suspect]
     Active Substance: ETOPOSIDE
     Indication: Acute myeloid leukaemia
     Dosage: 100MG/D X 3-5D
     Route: 065
  10. ETOPOSIDE [Suspect]
     Active Substance: ETOPOSIDE
     Indication: Precursor T-lymphoblastic lymphoma/leukaemia
  11. ETOPOSIDE [Suspect]
     Active Substance: ETOPOSIDE
     Indication: T-cell type acute leukaemia
  12. ETOPOSIDE [Suspect]
     Active Substance: ETOPOSIDE
     Indication: B-cell type acute leukaemia
  13. VENETOCLAX [Suspect]
     Active Substance: VENETOCLAX
     Indication: Acute myeloid leukaemia
     Dosage: 10MG BID X 14D
     Route: 065
  14. VENETOCLAX [Suspect]
     Active Substance: VENETOCLAX
     Indication: Precursor T-lymphoblastic lymphoma/leukaemia
  15. VENETOCLAX [Suspect]
     Active Substance: VENETOCLAX
     Indication: T-cell type acute leukaemia
  16. VENETOCLAX [Suspect]
     Active Substance: VENETOCLAX
     Indication: B-cell type acute leukaemia

REACTIONS (7)
  - Pancytopenia [Recovered/Resolved]
  - Rhinorrhoea [Unknown]
  - Chest discomfort [Unknown]
  - Oxygen saturation decreased [Unknown]
  - Cough [Unknown]
  - Off label use [Unknown]
  - Off label use [Unknown]
